FAERS Safety Report 9580876 (Version 3)
Quarter: 2013Q4

REPORT INFORMATION
  Report Type: Spontaneous
  Country: FR (occurrence: FR)
  Receive Date: 20131002
  Receipt Date: 20131028
  Transmission Date: 20140711
  Serious: Yes (Hospitalization, Other)
  Sender: FDA-Public Use
  Company Number: FR-BAXTER-2013BAX037482

PATIENT
  Age: 82 Year
  Sex: Female

DRUGS (13)
  1. FEIBA 1000 U/20 ML, POUDRE ET SOLVANT POUR SOLUTION INJECTABLE [Suspect]
     Indication: CEREBRAL HAEMATOMA
     Route: 042
     Dates: start: 20130416, end: 20130416
  2. FEIBA 1000 U/20 ML, POUDRE ET SOLVANT POUR SOLUTION INJECTABLE [Suspect]
     Indication: OFF LABEL USE
  3. LOVENOX [Suspect]
     Indication: THROMBOSIS PROPHYLAXIS
     Route: 058
     Dates: start: 20130418
  4. LOVENOX [Suspect]
     Route: 058
     Dates: start: 20130423
  5. LOVENOX [Suspect]
     Route: 058
     Dates: start: 20130430
  6. AMIODARONE [Concomitant]
     Indication: ATRIAL FIBRILLATION
     Route: 048
     Dates: start: 20130225
  7. LASILIX [Concomitant]
     Indication: DRUG THERAPY
     Route: 048
  8. LASILIX [Concomitant]
     Route: 048
     Dates: start: 20130506
  9. LERCAN [Concomitant]
     Indication: DRUG THERAPY
     Route: 048
     Dates: end: 20130506
  10. CARDENSIEL [Concomitant]
     Indication: DRUG THERAPY
     Route: 048
  11. OMEPRAZOLE [Concomitant]
     Indication: DRUG THERAPY
     Route: 048
  12. NOCTAMIDE [Concomitant]
     Indication: DRUG THERAPY
     Route: 048
  13. XARELTO [Concomitant]
     Indication: PRODUCT USED FOR UNKNOWN INDICATION
     Route: 048
     Dates: start: 20130225, end: 20130416

REACTIONS (2)
  - Deep vein thrombosis [Recovered/Resolved]
  - Drug ineffective [Recovered/Resolved]
